FAERS Safety Report 4508036-7 (Version None)
Quarter: 2004Q4

REPORT INFORMATION
  Report Type: 
  Country: None (occurrence: None)
  Receive Date: 20041123
  Receipt Date: 20030923
  Transmission Date: 20050328
  Serious: Yes (Other)
  Sender: FDA-Public Use
  Company Number: US-GLAXOSMITHKLINE-A0427054A

PATIENT
  Age: 41 Year
  Sex: Male

DRUGS (3)
  1. WELLBUTRIN [Suspect]
     Indication: DEPRESSION
     Route: 048
     Dates: start: 20030805, end: 20030917
  2. HEROIN [Suspect]
  3. METHADONE [Concomitant]

REACTIONS (1)
  - GRAND MAL CONVULSION [None]
